FAERS Safety Report 9223473 (Version 1)
Quarter: 2013Q2

REPORT INFORMATION
  Report Type: Spontaneous
  Country: US (occurrence: US)
  Receive Date: 20130410
  Receipt Date: 20130410
  Transmission Date: 20140414
  Serious: Yes (Other)
  Sender: FDA-Public Use
  Company Number: US-PFIZER INC-2013113232

PATIENT
  Age: 55 Year
  Sex: Male
  Weight: 190 kg

DRUGS (5)
  1. LIPITOR [Suspect]
     Indication: BLOOD CHOLESTEROL ABNORMAL
     Dosage: 40 MG, DAILY
  2. IBUPROFEN [Concomitant]
     Indication: NEUROPATHY PERIPHERAL
     Dosage: 800 MG, DAILY
  3. IBUPROFEN [Concomitant]
     Indication: ARTHRITIS
     Dosage: 800 MG, 2X/DAY
  4. BUMETANIDE [Concomitant]
     Indication: FLUID RETENTION
     Dosage: 1 MG, 2X/DAY
  5. DIAZEPAM [Concomitant]
     Indication: NERVOUS SYSTEM DISORDER
     Dosage: 10 MG, 2X/DAY

REACTIONS (3)
  - Restless legs syndrome [Unknown]
  - Pain [Unknown]
  - Oedema [Unknown]
